FAERS Safety Report 8136404-3 (Version None)
Quarter: 2012Q1

REPORT INFORMATION
  Report Type: 
  Country: None (occurrence: None)
  Receive Date: 20120214
  Receipt Date: 20120209
  Transmission Date: 20120608
  Serious: Yes (Hospitalization, Other)
  Sender: FDA-Public Use
  Company Number: GB-B.I. PHARMACEUTICALS,INC./RIDGEFIELD-2012-EU-00851GD

PATIENT
  Age: 63 Year
  Sex: Male

DRUGS (10)
  1. RANITIDINE [Suspect]
     Indication: DUODENITIS
  2. SIMVASTATIN [Concomitant]
     Indication: PROPHYLAXIS
  3. HELICOBACTER PYLORI ERADICATION THERAPY [Concomitant]
     Indication: HELICOBACTER INFECTION
  4. OMEPRAZOLE [Suspect]
     Indication: DUODENITIS
  5. LANSOPRAZOLE [Concomitant]
     Indication: DUODENITIS
     Dosage: 15 MG
  6. LANSOPRAZOLE [Concomitant]
     Indication: GASTRITIS EROSIVE
     Dosage: 30 NR
  7. OMEPRAZOLE [Suspect]
     Indication: GASTROOESOPHAGEAL REFLUX DISEASE
     Dosage: 40 MG
  8. RANITIDINE [Suspect]
     Indication: GASTRITIS EROSIVE
  9. AMLODIPINE [Concomitant]
     Indication: HYPERTENSION
  10. LANSOPRAZOLE [Concomitant]
     Indication: BARRETT'S OESOPHAGUS

REACTIONS (6)
  - CONVULSION [None]
  - DIARRHOEA [None]
  - ACUTE PRERENAL FAILURE [None]
  - HYPOMAGNESAEMIA [None]
  - VOMITING [None]
  - LETHARGY [None]
